FAERS Safety Report 8545276-4 (Version None)
Quarter: 2012Q3

REPORT INFORMATION
  Report Type: 
  Country: None (occurrence: None)
  Receive Date: 20120727
  Receipt Date: 20120428
  Transmission Date: 20120928
  Serious: No
  Sender: FDA-Public Use
  Company Number: US-009507513-2012SP024104

PATIENT

DRUGS (7)
  1. CLARITIN [Suspect]
     Indication: SEASONAL ALLERGY
     Dosage: 10 MG, QD
     Route: 048
  2. CLARITIN [Suspect]
     Indication: MEDICAL OBSERVATION
     Dosage: 20 MG, ONCE
     Route: 048
     Dates: start: 20120428
  3. CAPTOPRIL [Concomitant]
     Indication: HYPOTENSION
     Dosage: UNK UNK, QD
  4. LASIX [Concomitant]
     Indication: FIBROMYALGIA
     Dosage: UNK UNK, QD
  5. CORICIDIN [Concomitant]
     Indication: PRODUCT USED FOR UNKNOWN INDICATION
     Dosage: UNK UNK, PRN
  6. POTASSIUM (UNSPECIFIED) [Concomitant]
     Indication: INTERVERTEBRAL DISC DEGENERATION
     Dosage: UNK UNK, QD
  7. ULTRAM [Concomitant]
     Indication: CARDIAC FAILURE CONGESTIVE
     Dosage: UNK UNK, QD

REACTIONS (1)
  - OVERDOSE [None]
